FAERS Safety Report 4346854-9 (Version None)
Quarter: 2004Q2

REPORT INFORMATION
  Report Type: 
  Country: None (occurrence: None)
  Receive Date: 20040426
  Receipt Date: 20040415
  Transmission Date: 20050107
  Serious: Yes (Hospitalization, Other)
  Sender: FDA-Public Use
  Company Number: PHHO2004JP05700

PATIENT
  Age: 81 Year
  Sex: Female

DRUGS (1)
  1. DIOVAN [Suspect]
     Indication: HYPERTENSION
     Dosage: 80 MG, QD
     Route: 048
     Dates: start: 20021114, end: 20030910

REACTIONS (6)
  - DIZZINESS [None]
  - HOARSENESS [None]
  - LARYNGEAL DISCOMFORT [None]
  - PALPITATIONS [None]
  - RECTAL LESION EXCISION [None]
  - RECTAL POLYP [None]
